FAERS Safety Report 10146439 (Version 1)
Quarter: 2014Q2

REPORT INFORMATION
  Report Type: Spontaneous
  Country: US (occurrence: None)
  Receive Date: 20140429
  Receipt Date: 20140429
  Transmission Date: 20141212
  Serious: Yes (Other)
  Sender: FDA-Public Use
  Company Number: AUR-APL-2014-05114

PATIENT
  Age: 29 Year
  Sex: Female

DRUGS (18)
  1. METFORMIN [Suspect]
     Indication: PRODUCT USED FOR UNKNOWN INDICATION
     Dosage: AFTER MORNING AND DINNER MEALS 1000MG, 2 IN 1 D), ORAL
  2. AMOXCILLLIN [Suspect]
     Indication: PRODUCT USED FOR UNKNOWN INDICATION
     Route: 048
  3. MOTRIN [Suspect]
     Indication: PAIN
     Dosage: 800 MG EVERY 6-8 HOURS, ORAL
     Route: 048
  4. NADOLOL [Suspect]
     Indication: PRODUCT USED FOR UNKNOWN INDICATION
     Dosage: EVERY 6-8 HOURS (40 MG, 2 IN 1 D), ORAL?
     Route: 048
  5. HYDROCORTISONE ACETATE [Suspect]
     Indication: PRODUCT USED FOR UNKNOWN INDICATION
     Route: 061
  6. TOPAMAX [Suspect]
     Indication: MIGRAINE
     Route: 048
     Dates: start: 200409, end: 200712
  7. TYLENOL 3 [Suspect]
     Indication: PAIN
     Dosage: 1 TO 2 TABLETS EVERY 4-6 HOURS AS NECESWSARY, ORAL?
     Route: 048
  8. IMITREX [Suspect]
     Indication: MIGRAINE
     Route: 048
     Dates: start: 2003
  9. IMITREX [Suspect]
     Indication: PRODUCT USED FOR UNKNOWN INDICATION
     Route: 048
     Dates: start: 2003
  10. PHENERGAN [Suspect]
     Indication: VOMITING
     Dosage: 50 MG (25 MG, 1 IN 12 HR), RECTAL
     Route: 054
  11. PHENERGAN [Suspect]
     Indication: NAUSEA
     Dosage: 50 MG (25 MG, 1 IN 12 HR), RECTAL
     Route: 054
  12. DILAUDID [Suspect]
     Indication: MIGRAINE
     Dosage: 16 MG (4 MG, 1 IN 6 HR), ORAL
     Route: 048
  13. DILAUDID [Suspect]
     Indication: PAIN
     Dosage: 16 MG (4 MG, 1 IN 6 HR), ORAL
     Route: 048
  14. DILAUDID [Suspect]
     Indication: HEADACHE
     Dosage: 16 MG (4 MG, 1 IN 6 HR), ORAL
     Route: 048
  15. KENALOG [Suspect]
     Indication: PRODUCT USED FOR UNKNOWN INDICATION
     Route: 042
  16. XYLOCAINE [Suspect]
     Indication: PRODUCT USED FOR UNKNOWN INDICATION
     Route: 042
  17. CLARITIN [Suspect]
     Indication: HYPERSENSITIVITY
     Route: 048
  18. CALCIUM MAGNESIUM (ACIDOVERT) [Concomitant]

REACTIONS (4)
  - Emotional disorder [None]
  - Caesarean section [None]
  - Premature delivery [None]
  - Maternal exposure during pregnancy [None]
